FAERS Safety Report 4733559-5 (Version None)
Quarter: 2005Q3

REPORT INFORMATION
  Report Type: 
  Country: None (occurrence: None)
  Receive Date: 20050803
  Receipt Date: 20050803
  Transmission Date: 20060218
  Serious: No
  Sender: FDA-Public Use
  Company Number: None

PATIENT
  Age: 75 Year
  Sex: Female
  Weight: 61.2356 kg

DRUGS (1)
  1. PROVIGIL [Suspect]
     Indication: NARCOLEPSY
     Dosage: 150MG DAILY 1 1/2 TAB
     Dates: start: 20021001, end: 20030101

REACTIONS (2)
  - DEPRESSION [None]
  - SOMNOLENCE [None]
